FAERS Safety Report 8977679 (Version 4)
Quarter: 2013Q1

REPORT INFORMATION
  Report Type: Spontaneous
  Country: JP (occurrence: JP)
  Receive Date: 20121220
  Receipt Date: 20130319
  Transmission Date: 20140127
  Serious: Yes (Other)
  Sender: FDA-Public Use
  Company Number: JP-PFIZER INC-2012315344

PATIENT
  Age: 10 Year
  Sex: Female

DRUGS (7)
  1. DOXORUBICIN HCL [Suspect]
     Dosage: UNK
  2. IFOSFAMIDE [Suspect]
     Dosage: UNK
  3. METHOTREXATE SODIUM [Suspect]
     Indication: OSTEOSARCOMA
     Dosage: UNK
  4. VINCRISTINE [Suspect]
  5. BLEOMYCIN [Suspect]
  6. CYCLOPHOSPHAMIDE [Suspect]
  7. DACTINOMYCIN [Suspect]

REACTIONS (3)
  - Renal impairment [Unknown]
  - Second primary malignancy [Unknown]
  - Lung adenocarcinoma [Unknown]
